FAERS Safety Report 4496534-4 (Version None)
Quarter: 2004Q4

REPORT INFORMATION
  Report Type: 
  Country: None (occurrence: None)
  Receive Date: 20041109
  Receipt Date: 20041026
  Transmission Date: 20050328
  Serious: Yes (Other)
  Sender: FDA-Public Use
  Company Number: CA-JNJFOC-20041001165

PATIENT
  Sex: Female
  Weight: 51.71 kg

DRUGS (2)
  1. REMICADE [Suspect]
     Indication: RHEUMATOID ARTHRITIS
     Route: 042
  2. METHOTREXATE [Suspect]
     Indication: RHEUMATOID ARTHRITIS
     Route: 030

REACTIONS (7)
  - DRUG INTERACTION [None]
  - LACRIMATION INCREASED [None]
  - MEDICATION ERROR [None]
  - NAUSEA [None]
  - OPTIC NEURITIS [None]
  - PSORIASIS [None]
  - TEMPERATURE INTOLERANCE [None]
